FAERS Safety Report 15517685 (Version 2)
Quarter: 2018Q4

REPORT INFORMATION
  Report Type: Report from Study
  Country: US (occurrence: US)
  Receive Date: 20181017
  Receipt Date: 20181217
  Transmission Date: 20190205
  Serious: Yes (Hospitalization)
  Sender: FDA-Public Use
  Company Number: US-TESARO-2018-TSO1269-US

PATIENT
  Age: 62 Year
  Sex: Female

DRUGS (1)
  1. ZEJULA [Suspect]
     Active Substance: NIRAPARIB
     Indication: OVARIAN CANCER
     Dosage: 200 MG, QD, 2 CAPSULES BY MOUTH ONCE DAILY
     Route: 048
     Dates: start: 20180920

REACTIONS (3)
  - Blood count abnormal [Unknown]
  - Nasal crusting [Unknown]
  - Haemorrhage [Unknown]

NARRATIVE: CASE EVENT DATE: 20181001
